FAERS Safety Report 12702169 (Version 6)
Quarter: 2016Q4

REPORT INFORMATION
  Report Type: Spontaneous
  Country: US (occurrence: US)
  Receive Date: 20160831
  Receipt Date: 20161114
  Transmission Date: 20170207
  Serious: Yes (Other)
  Sender: FDA-Public Use
  Company Number: US-PFIZER INC-2016369764

PATIENT
  Age: 53 Year
  Sex: Female
  Weight: 64 kg

DRUGS (2)
  1. PREMARIN [Suspect]
     Active Substance: ESTROGENS, CONJUGATED
     Indication: ATROPHIC VULVOVAGINITIS
  2. PREMARIN [Suspect]
     Active Substance: ESTROGENS, CONJUGATED
     Indication: OESTROGEN REPLACEMENT THERAPY
     Dosage: HALF APPLICATOR, 2X/WEEK
     Route: 067
     Dates: start: 2006

REACTIONS (8)
  - Poor quality drug administered [Unknown]
  - Dysuria [Unknown]
  - Vaginal haemorrhage [Unknown]
  - Product contamination [Unknown]
  - Vulvovaginal rash [Unknown]
  - Vulvovaginal burning sensation [Unknown]
  - Vaginal infection [Unknown]
  - Insomnia [Unknown]
